FAERS Safety Report 5303308-0 (Version None)
Quarter: 2007Q2

REPORT INFORMATION
  Report Type: 
  Country: None (occurrence: None)
  Receive Date: 20070420
  Receipt Date: 20070412
  Transmission Date: 20071010
  Serious: Yes (Death, Hospitalization)
  Sender: FDA-Public Use
  Company Number: FR-GLAXOSMITHKLINE-B0466206A

PATIENT
  Age: 58 Year
  Sex: Female
  Weight: 95 kg

DRUGS (8)
  1. ZANTAC [Suspect]
     Dosage: 25MG SINGLE DOSE
     Route: 042
     Dates: start: 20070309, end: 20070309
  2. ZANTAC [Suspect]
     Dosage: 25MG SINGLE DOSE
     Route: 042
     Dates: start: 20070209, end: 20070209
  3. POLARAMINE [Suspect]
     Dosage: 2.5MG SINGLE DOSE
     Route: 042
     Dates: start: 20070309, end: 20070309
  4. POLARAMINE [Concomitant]
     Dosage: 2.5MG SINGLE DOSE
     Route: 042
     Dates: start: 20070209, end: 20070209
  5. TAXOL [Concomitant]
     Dosage: 260MG SINGLE DOSE
     Route: 042
     Dates: start: 20070209, end: 20070209
  6. HERCEPTIN [Concomitant]
     Dosage: 190MG SINGLE DOSE
     Route: 042
     Dates: start: 20070209, end: 20070209
  7. CARBOPLATIN [Concomitant]
     Dosage: 195MG SINGLE DOSE
     Route: 042
     Dates: start: 20070209, end: 20070209
  8. SOLU-MEDROL [Concomitant]
     Dosage: 60MG SINGLE DOSE
     Route: 042
     Dates: start: 20070209, end: 20070209

REACTIONS (12)
  - ABDOMINAL PAIN [None]
  - ANAPHYLACTIC SHOCK [None]
  - ANURIA [None]
  - CARDIAC ARREST [None]
  - ERYTHEMA [None]
  - HEPATIC NECROSIS [None]
  - LIVEDO RETICULARIS [None]
  - LOSS OF CONSCIOUSNESS [None]
  - MYDRIASIS [None]
  - PARAESTHESIA [None]
  - RENAL IMPAIRMENT [None]
  - SYNCOPE [None]
